FAERS Safety Report 9631696 (Version 1)
Quarter: 2013Q4

REPORT INFORMATION
  Report Type: Spontaneous
  Country: FR (occurrence: FR)
  Receive Date: 20131018
  Receipt Date: 20131018
  Transmission Date: 20140711
  Serious: Yes (Hospitalization, Other)
  Sender: FDA-Public Use
  Company Number: FR-PFIZER INC-2013294480

PATIENT
  Age: 54 Year
  Sex: Male

DRUGS (12)
  1. TAHOR [Suspect]
     Dosage: 10 MG, ALTERNATE DAY
     Route: 048
     Dates: start: 20130805, end: 20130819
  2. TAHOR [Suspect]
     Dosage: 10 MG, 1X/DAY
     Route: 048
     Dates: start: 20130820, end: 20130917
  3. LIPANTHYL [Suspect]
     Dosage: 145 MG, 1X/DAY
     Route: 048
     Dates: start: 2001, end: 20130917
  4. NOVONORM [Concomitant]
     Dosage: UNK
     Route: 048
     Dates: start: 201309, end: 20130920
  5. GALVUS [Concomitant]
     Dosage: UNK
     Route: 048
     Dates: start: 201309, end: 20130920
  6. ALLOPURINOL [Concomitant]
  7. LEXOMIL [Concomitant]
  8. KARDEGIC [Concomitant]
  9. DETENSIEL [Concomitant]
  10. EXFORGE [Concomitant]
  11. ESIDREX [Concomitant]
     Dosage: UNK
     Dates: start: 20130726
  12. VELMETIA [Concomitant]
     Dosage: UNK
     Dates: end: 201309

REACTIONS (5)
  - Rhabdomyolysis [Recovering/Resolving]
  - Renal failure acute [Unknown]
  - Hypotension [Unknown]
  - Blood creatine phosphokinase increased [Recovered/Resolved]
  - Gamma-glutamyltransferase increased [Recovering/Resolving]
